FAERS Safety Report 16613864 (Version 1)
Quarter: 2019Q3

REPORT INFORMATION
  Report Type: Spontaneous
  Country: GB (occurrence: GB)
  Receive Date: 20190723
  Receipt Date: 20190723
  Transmission Date: 20191004
  Serious: Yes (Other)
  Sender: FDA-Public Use
  Company Number: GB-ASTRAZENECA-2019SF03828

PATIENT
  Age: 53 Year
  Sex: Female
  Weight: 134 kg

DRUGS (9)
  1. DAPAGLIFLOZIN. [Suspect]
     Active Substance: DAPAGLIFLOZIN
     Dosage: 10.0MG UNKNOWN
     Route: 048
     Dates: start: 20170906, end: 20171108
  2. MOVELAT [Concomitant]
     Dosage: APPLY UP TO FOUR TIMES DAILY
     Dates: start: 20170623
  3. COCODAMOL [Concomitant]
     Active Substance: ACETAMINOPHEN\CODEINE PHOSPHATE
     Dosage: 30MG/500MG, 1-2 CAPSULES UP TO FOUR TIMES DAILY
     Dates: start: 20170623
  4. SERTRALINE [Concomitant]
     Active Substance: SERTRALINE HYDROCHLORIDE
     Dosage: SEE GP PRIOR TO NEXT PRESCRIPTION.200 MG DAILY
     Dates: start: 20170901
  5. PARACETAMOL [Concomitant]
     Active Substance: ACETAMINOPHEN
     Indication: PAIN
     Dosage: 500 MG FOUR TIMES A DAY WITH 1 CO-CODAMOL WHEN NEEDED
     Dates: start: 20170623
  6. OMEPRAZOLE. [Concomitant]
     Active Substance: OMEPRAZOLE
     Dates: start: 20170623
  7. PROCHLORPERAZINE. [Concomitant]
     Active Substance: PROCHLORPERAZINE
     Dates: start: 20170623
  8. MEBEVERINE [Concomitant]
     Active Substance: MEBEVERINE
     Dates: start: 20170623
  9. RANITIDINE. [Concomitant]
     Active Substance: RANITIDINE
     Dates: start: 20170623

REACTIONS (2)
  - Irritable bowel syndrome [Unknown]
  - Diarrhoea [Recovered/Resolved]

NARRATIVE: CASE EVENT DATE: 20170908
